FAERS Safety Report 23069108 (Version 6)
Quarter: 2023Q4

REPORT INFORMATION
  Report Type: Spontaneous
  Country: CA (occurrence: CA)
  Receive Date: 20231016
  Receipt Date: 20231226
  Transmission Date: 20240109
  Serious: Yes (Other)
  Sender: FDA-Public Use
  Company Number: CA-PFIZER INC-PV202300163097

PATIENT
  Age: 73 Year
  Sex: Male
  Weight: 75 kg

DRUGS (18)
  1. ZIRABEV [Suspect]
     Active Substance: BEVACIZUMAB-BVZR
     Indication: Biphasic mesothelioma
     Dosage: 15 MG/KG, EVERY 3 WEEKS, REPEATS: 12 WITH CHEMO FOR SIX CYCLES THEN MAINTENANCE AS LONG AS TOLERATED
     Route: 042
  2. ZIRABEV [Suspect]
     Active Substance: BEVACIZUMAB-BVZR
     Dosage: 1125 MG
     Route: 042
     Dates: start: 20231102
  3. ZIRABEV [Suspect]
     Active Substance: BEVACIZUMAB-BVZR
     Dosage: 1125 MG
     Route: 042
     Dates: start: 20231123
  4. ZIRABEV [Suspect]
     Active Substance: BEVACIZUMAB-BVZR
     Dosage: 1125 MG
     Route: 042
     Dates: start: 20231214
  5. CARBOPLATIN/PEMETREXED [Concomitant]
     Dosage: UNK
     Dates: start: 20231012
  6. CORTEF ACETATE [Concomitant]
     Active Substance: HYDROCORTISONE ACETATE
     Dosage: UNK
  7. LEVOTHYROXINE [Concomitant]
     Active Substance: LEVOTHYROXINE
     Dosage: 112.5 MCG
  8. ZOPICLONE [Concomitant]
     Active Substance: ZOPICLONE
     Dosage: 5 MG
  9. AKYNZEO [FOSNETUPITANT CHLORIDE HYDROCHLORIDE;PALONOSETRON HYDROCHLORI [Concomitant]
     Dosage: UNK
  10. HYDROCORTISONE [Concomitant]
     Active Substance: HYDROCORTISONE
     Dosage: 10 MG
  11. DORZOLAMIDE [Concomitant]
     Active Substance: DORZOLAMIDE
     Dosage: 1 GTT TID (EVERY 8 HOURS)
  12. FOLIC ACID [Concomitant]
     Active Substance: FOLIC ACID
     Dosage: 1 MG
  13. DEXAMETHASONE [Concomitant]
     Active Substance: DEXAMETHASONE
     Dosage: 4 MG
  14. OLANZAPINE [Concomitant]
     Active Substance: OLANZAPINE
     Dosage: 25 MG
  15. AMLODIPINE [Concomitant]
     Active Substance: AMLODIPINE BESYLATE
     Dosage: 5 MG
  16. ATORVASTATIN [Concomitant]
     Active Substance: ATORVASTATIN
     Dosage: 10 MG
  17. TIMOLOL [Concomitant]
     Active Substance: TIMOLOL
     Dosage: 1 DROP, DAILY
     Route: 047
  18. VITAMIN B12 [Concomitant]
     Active Substance: CYANOCOBALAMIN
     Dosage: 1000 UG

REACTIONS (4)
  - Skin laceration [Unknown]
  - Hypertension [Not Recovered/Not Resolved]
  - Neoplasm progression [Unknown]
  - Off label use [Unknown]

NARRATIVE: CASE EVENT DATE: 20231214
